FAERS Safety Report 6645281-9 (Version None)
Quarter: 2010Q1

REPORT INFORMATION
  Report Type: 
  Country: None (occurrence: None)
  Receive Date: 20100322
  Receipt Date: 20100315
  Transmission Date: 20100710
  Serious: Yes (Hospitalization)
  Sender: FDA-Public Use
  Company Number: PHHO2009SE15725

PATIENT
  Sex: Male
  Weight: 83.4 kg

DRUGS (3)
  1. CERTICAN [Suspect]
     Indication: RENAL TRANSPLANT
     Dosage: 2 MG, BID
     Route: 048
     Dates: start: 20091117, end: 20091219
  2. MYFORTIC [Concomitant]
     Indication: RENAL TRANSPLANT
     Dosage: 540 MG, BID
     Route: 048
     Dates: start: 20091130, end: 20091219
  3. PREDNISOLON [Concomitant]
     Indication: RENAL TRANSPLANT
     Dosage: 10 MG, QD
     Dates: start: 20091207

REACTIONS (3)
  - BLOOD CREATININE INCREASED [None]
  - KIDNEY TRANSPLANT REJECTION [None]
  - TUBULOINTERSTITIAL NEPHRITIS [None]
